FAERS Safety Report 21103364 (Version 1)
Quarter: 2022Q3

REPORT INFORMATION
  Report Type: Spontaneous
  Country: US (occurrence: US)
  Receive Date: 20220720
  Receipt Date: 20220720
  Transmission Date: 20221027
  Serious: No
  Sender: FDA-Public Use
  Company Number: US-JNJFOC-20220724540

PATIENT
  Age: 21 Year
  Sex: Female

DRUGS (21)
  1. ZYRTEC [Suspect]
     Active Substance: CETIRIZINE HYDROCHLORIDE
     Indication: Urticaria
     Route: 048
     Dates: start: 202107
  2. ZYRTEC [Suspect]
     Active Substance: CETIRIZINE HYDROCHLORIDE
     Indication: Oedema
  3. ZYRTEC [Suspect]
     Active Substance: CETIRIZINE HYDROCHLORIDE
     Indication: Dyspnoea
  4. BENADRYL [Suspect]
     Active Substance: DIPHENHYDRAMINE HYDROCHLORIDE
     Indication: Swelling
     Route: 065
     Dates: start: 20210831
  5. BENADRYL [Suspect]
     Active Substance: DIPHENHYDRAMINE HYDROCHLORIDE
     Indication: Urticaria
  6. BENADRYL [Suspect]
     Active Substance: DIPHENHYDRAMINE HYDROCHLORIDE
     Indication: Dyspnoea
  7. COVID-19 VACCINE [Concomitant]
     Indication: Product used for unknown indication
     Dosage: RIGHT ARM; 1ST PFIZER VACCINE
     Route: 030
     Dates: start: 20210423
  8. COVID-19 VACCINE [Concomitant]
     Dosage: RIGHT ARM; 2ND PFIZER VACCINE
     Route: 030
     Dates: start: 20210514
  9. XOLAIR [Concomitant]
     Active Substance: OMALIZUMAB
     Indication: Angioedema
     Dosage: FIRST DOSE
     Route: 065
     Dates: start: 202109
  10. XOLAIR [Concomitant]
     Active Substance: OMALIZUMAB
     Dosage: SECOND DOSE
     Route: 065
     Dates: start: 20211102
  11. SINGULAIR [Concomitant]
     Active Substance: MONTELUKAST SODIUM
     Indication: Urticaria
     Route: 048
     Dates: start: 20211024
  12. SINGULAIR [Concomitant]
     Active Substance: MONTELUKAST SODIUM
     Indication: Angioedema
  13. ALLEGRA [Concomitant]
     Active Substance: FEXOFENADINE HYDROCHLORIDE
     Indication: Urticaria
     Route: 048
     Dates: start: 202107
  14. ALLEGRA [Concomitant]
     Active Substance: FEXOFENADINE HYDROCHLORIDE
     Indication: Angioedema
  15. ALBUTEROL [Concomitant]
     Active Substance: ALBUTEROL
     Indication: Swelling
     Route: 065
  16. ALBUTEROL [Concomitant]
     Active Substance: ALBUTEROL
     Indication: Urticaria
  17. ALBUTEROL [Concomitant]
     Active Substance: ALBUTEROL
     Indication: Angioedema
  18. ALBUTEROL [Concomitant]
     Active Substance: ALBUTEROL
     Indication: Dyspnoea
  19. DECADRON [Concomitant]
     Active Substance: DEXAMETHASONE
     Indication: Urticaria
     Route: 065
     Dates: start: 20220509
  20. DECADRON [Concomitant]
     Active Substance: DEXAMETHASONE
     Indication: Swelling
  21. DECADRON [Concomitant]
     Active Substance: DEXAMETHASONE
     Indication: Dyspnoea

REACTIONS (2)
  - Off label use [Unknown]
  - Therapeutic response unexpected [Unknown]

NARRATIVE: CASE EVENT DATE: 20210701
